FAERS Safety Report 9457560 (Version 1)
Quarter: 2013Q3

REPORT INFORMATION
  Report Type: Spontaneous
  Country: IT (occurrence: None)
  Receive Date: 20130812
  Receipt Date: 20130812
  Transmission Date: 20140515
  Serious: Yes (Hospitalization)
  Sender: FDA-Public Use
  Company Number: AG-2013-0075

PATIENT
  Age: 58 Year
  Sex: Female
  Weight: 80 kg

DRUGS (8)
  1. CHLORAMBUCIL [Suspect]
     Indication: CHRONIC LYMPHOCYTIC LEUKAEMIA
     Dosage: FORNIGHTLY (UNKNOWN, 1 IN 2 WEEKS)
     Route: 048
     Dates: start: 20120131
  2. OBINUTUZUMAB (MONOCLONAL ANTIBODIES) (UNKNOWN) [Suspect]
     Dates: start: 20120201
  3. TICLOPIDINE [Concomitant]
  4. GLUCOPHAGE [Concomitant]
  5. LANTUS [Concomitant]
  6. TAREG [Concomitant]
  7. CARDURA [Concomitant]
  8. EUTIROX [Concomitant]

REACTIONS (6)
  - Tumour lysis syndrome [None]
  - Hepatotoxicity [None]
  - Aspartate aminotransferase increased [None]
  - Alanine aminotransferase increased [None]
  - Blood alkaline phosphatase increased [None]
  - Blood creatinine increased [None]
